FAERS Safety Report 6319297-6 (Version None)
Quarter: 2009Q3

REPORT INFORMATION
  Report Type: 
  Country: None (occurrence: None)
  Receive Date: 20090821
  Receipt Date: 20080829
  Transmission Date: 20100115
  Serious: No
  Sender: FDA-Public Use
  Company Number: US-ABBOTT-08P-163-0471859-00

PATIENT
  Sex: Male
  Weight: 66.284 kg

DRUGS (6)
  1. NIASPAN [Suspect]
     Indication: BLOOD CHOLESTEROL INCREASED
     Route: 048
     Dates: start: 20080820
  2. EZETIMIBE [Concomitant]
     Indication: BLOOD CHOLESTEROL
     Route: 048
  3. GENERIC NORVASC [Concomitant]
     Indication: BLOOD PRESSURE
     Route: 048
  4. GENERIC PROSCAR [Concomitant]
     Indication: PROSTATIC DISORDER
     Route: 048
  5. TERAZOSIN [Concomitant]
     Indication: PROSTATIC DISORDER
     Route: 048
  6. WARFARIN SODIUM [Concomitant]
     Indication: ATRIAL FIBRILLATION
     Route: 048

REACTIONS (4)
  - DIARRHOEA [None]
  - MUSCLE SPASMS [None]
  - NAUSEA [None]
  - VOMITING [None]
